FAERS Safety Report 7788870-0 (Version None)
Quarter: 2011Q3

REPORT INFORMATION
  Report Type: 
  Country: None (occurrence: None)
  Receive Date: 20110930
  Receipt Date: 20110915
  Transmission Date: 20111222
  Serious: Yes (Other)
  Sender: FDA-Public Use
  Company Number: IT-BIOGENIDEC-2011BI016977

PATIENT
  Age: 43 Year
  Sex: Female

DRUGS (7)
  1. PAROXETINE HCL [Concomitant]
     Route: 048
  2. TYSABRI [Suspect]
     Route: 042
     Dates: start: 20110601
  3. ARIPIPRAZOLE [Concomitant]
     Route: 048
  4. LAMOTRIGINE [Concomitant]
     Route: 048
  5. MIRTAZAPINE [Concomitant]
     Route: 048
  6. TYSABRI [Suspect]
     Indication: RELAPSING-REMITTING MULTIPLE SCLEROSIS
     Route: 042
     Dates: start: 20100112, end: 20110419
  7. DELORAZEPAM [Concomitant]
     Route: 048

REACTIONS (1)
  - EXTRAPYRAMIDAL DISORDER [None]
